FAERS Safety Report 12375158 (Version 2)
Quarter: 2016Q2

REPORT INFORMATION
  Report Type: Report from Study
  Country: US (occurrence: US)
  Receive Date: 20160517
  Receipt Date: 20160525
  Transmission Date: 20160815
  Serious: No
  Sender: FDA-Public Use
  Company Number: US-AMGEN-USASL2016061478

PATIENT
  Age: 52 Year
  Sex: Female

DRUGS (2)
  1. ENBREL [Suspect]
     Active Substance: ETANERCEPT
     Dosage: 50 MG, QWK
     Route: 065
     Dates: start: 20160408
  2. ENBREL [Suspect]
     Active Substance: ETANERCEPT
     Indication: RHEUMATOID ARTHRITIS
     Dosage: UNK UNK, QWK
     Route: 065
     Dates: start: 201604

REACTIONS (20)
  - Muscle tightness [Unknown]
  - Hypoaesthesia [Unknown]
  - Head discomfort [Unknown]
  - Fatigue [Not Recovered/Not Resolved]
  - Pruritus [Unknown]
  - Carpal tunnel syndrome [Unknown]
  - Sinusitis [Unknown]
  - Paraesthesia [Unknown]
  - Back disorder [Not Recovered/Not Resolved]
  - Mobility decreased [Not Recovered/Not Resolved]
  - Discomfort [Unknown]
  - Asthenia [Unknown]
  - Upper-airway cough syndrome [Unknown]
  - Drug dose omission [Unknown]
  - Peripheral swelling [Unknown]
  - Injection site pain [Unknown]
  - Pain in extremity [Unknown]
  - Musculoskeletal stiffness [Unknown]
  - Headache [Unknown]
  - Inflammation [Unknown]

NARRATIVE: CASE EVENT DATE: 2016
